FAERS Safety Report 9218706 (Version 1)
Quarter: 2013Q2

REPORT INFORMATION
  Report Type: Spontaneous
  Country: US (occurrence: US)
  Receive Date: 20130409
  Receipt Date: 20130409
  Transmission Date: 20140414
  Serious: Yes (Other)
  Sender: FDA-Public Use
  Company Number: US-AMGEN-USASP2013023674

PATIENT
  Age: 41 Year
  Sex: Male

DRUGS (1)
  1. ENBREL [Suspect]
     Indication: PSORIASIS
     Dosage: 10 ML, 2 TIMES/WK BUT ALSO STATES ONE SC TWICE WEEKLY
     Dates: start: 2008, end: 2013

REACTIONS (6)
  - Thyroid neoplasm [Not Recovered/Not Resolved]
  - Thyroid function test abnormal [Recovered/Resolved]
  - Vision blurred [Not Recovered/Not Resolved]
  - Exophthalmos [Not Recovered/Not Resolved]
  - Skin plaque [Not Recovered/Not Resolved]
  - Hepatic enzyme increased [Recovered/Resolved]
